FAERS Safety Report 8991038 (Version 1)
Quarter: 2012Q4

REPORT INFORMATION
  Report Type: 
  Country: US (occurrence: None)
  Receive Date: 20121227
  Receipt Date: 20121227
  Transmission Date: 20130627
  Serious: Yes (Hospitalization)
  Sender: FDA-Public Use
  Company Number: None

PATIENT
  Sex: Male
  Weight: 98.3 kg

DRUGS (6)
  1. CYCLOPHOSPHAMIDE [Suspect]
  2. DOXORUBICIN HYDROCHLORIDE [Suspect]
  3. ETOPOSIDE (VP-16) [Suspect]
  4. PREDNISONE [Suspect]
  5. RITUXIMAB (MOAB C2B8 ANTI CD20, CHIMERIC) [Suspect]
  6. VINCRISTINE SULFATE [Suspect]

REACTIONS (7)
  - Diarrhoea [None]
  - Syncope [None]
  - Head injury [None]
  - Loss of consciousness [None]
  - Laceration [None]
  - Blood potassium decreased [None]
  - Dehydration [None]
